FAERS Safety Report 7469113-4 (Version None)
Quarter: 2011Q2

REPORT INFORMATION
  Report Type: 
  Country: None (occurrence: None)
  Receive Date: 20110510
  Receipt Date: 20110426
  Transmission Date: 20111010
  Serious: Yes (Hospitalization, Congenital Anomaly)
  Sender: FDA-Public Use
  Company Number: FR-ELI_LILLY_AND_COMPANY-FR201104007066

PATIENT
  Weight: 2.93 kg

DRUGS (3)
  1. TERCIAN [Concomitant]
     Dosage: 25 MG, TID
     Route: 064
  2. SOLIAN [Concomitant]
     Dosage: 20 MG, BID
     Route: 064
  3. PROZAC [Suspect]
     Dosage: 20 MG, BID
     Route: 064

REACTIONS (8)
  - DRUG WITHDRAWAL SYNDROME NEONATAL [None]
  - CEREBRAL VENTRICLE DILATATION [None]
  - DYSMORPHISM [None]
  - CEREBELLAR HYPOPLASIA [None]
  - EYE MOVEMENT DISORDER [None]
  - DRUG EXPOSURE DURING PREGNANCY [None]
  - SLEEP DISORDER [None]
  - EXCESSIVE EYE BLINKING [None]
